FAERS Safety Report 12575699 (Version 2)
Quarter: 2019Q3

REPORT INFORMATION
  Report Type: Report from Study
  Country: US (occurrence: US)
  Receive Date: 20160720
  Receipt Date: 20190711
  Transmission Date: 20191004
  Serious: Yes (Other)
  Sender: FDA-Public Use
  Company Number: US-BRISTOL-MYERS SQUIBB COMPANY-BMS-2016-057594

PATIENT
  Sex: Female

DRUGS (1)
  1. APIXABAN [Suspect]
     Active Substance: APIXABAN
     Indication: CEREBROVASCULAR ACCIDENT PROPHYLAXIS
     Dosage: UNK
     Route: 048

REACTIONS (16)
  - Chest pain [Unknown]
  - Pruritus generalised [Unknown]
  - Rash macular [Unknown]
  - Abdominal distension [Unknown]
  - Fatigue [Unknown]
  - Eating disorder [Unknown]
  - Loss of consciousness [Unknown]
  - Gait disturbance [Unknown]
  - Contusion [Unknown]
  - Feeling abnormal [Unknown]
  - Vision blurred [Unknown]
  - Fall [Unknown]
  - Dyspnoea [Unknown]
  - Dizziness [Unknown]
  - Asthenia [Unknown]
  - Hypertension [Unknown]
